FAERS Safety Report 5798691-6 (Version None)
Quarter: 2008Q3

REPORT INFORMATION
  Report Type: 
  Country: None (occurrence: None)
  Receive Date: 20080702
  Receipt Date: 20080623
  Transmission Date: 20090109
  Serious: Yes (Hospitalization, Other)
  Sender: FDA-Public Use
  Company Number: AT-WYE-H04429108

PATIENT
  Sex: Male
  Weight: 62 kg

DRUGS (9)
  1. RAPAMUNE [Suspect]
     Indication: PROPHYLAXIS AGAINST TRANSPLANT REJECTION
     Dosage: UNKNOWN
     Route: 065
     Dates: end: 20070512
  2. CELLCEPT [Concomitant]
     Indication: PROPHYLAXIS AGAINST TRANSPLANT REJECTION
     Dosage: UNKNOWN
     Route: 065
     Dates: start: 20070314
  3. URSO FALK [Concomitant]
     Dosage: UNKNOWN
     Route: 065
     Dates: start: 20070512
  4. PANTOPRAZOLE SODIUM [Concomitant]
     Indication: PROPHYLAXIS AGAINST GASTROINTESTINAL ULCER
     Dosage: UNKNOWN
     Route: 065
     Dates: start: 20070512
  5. THROMBO ASS [Concomitant]
     Indication: ANTICOAGULANT THERAPY
     Dosage: UNKNOWN
     Route: 065
     Dates: start: 20071108, end: 20080527
  6. EPIVIR [Concomitant]
     Indication: ANTIVIRAL PROPHYLAXIS
     Dosage: UNKNOWN
     Route: 065
     Dates: start: 20070512
  7. INSULIN MIXTARD [Concomitant]
     Indication: DIABETES MELLITUS
     Dosage: UNKNOWN
     Route: 065
     Dates: start: 20070512
  8. CYCLOSPORINE [Suspect]
     Indication: PROPHYLAXIS AGAINST TRANSPLANT REJECTION
     Route: 048
     Dates: start: 20070314
  9. FOSAMAX [Concomitant]
     Indication: OSTEOPOROSIS PROPHYLAXIS
     Dosage: UNKNOWN
     Route: 065
     Dates: start: 20070326

REACTIONS (1)
  - METASTASIS [None]
